FAERS Safety Report 15310990 (Version 1)
Quarter: 2018Q3

REPORT INFORMATION
  Report Type: Spontaneous
  Country: AR (occurrence: AR)
  Receive Date: 20180823
  Receipt Date: 20180823
  Transmission Date: 20181010
  Serious: Yes (Other)
  Sender: FDA-Public Use
  Company Number: AR-JNJFOC-20180828549

PATIENT
  Age: 32 Year
  Sex: Male

DRUGS (2)
  1. XARELTO [Suspect]
     Active Substance: RIVAROXABAN
     Indication: EMBOLISM VENOUS
     Route: 048
     Dates: start: 20180815
  2. XARELTO [Suspect]
     Active Substance: RIVAROXABAN
     Indication: EMBOLISM VENOUS
     Route: 048
     Dates: start: 201801, end: 20180813

REACTIONS (5)
  - Accident [Recovering/Resolving]
  - Dysstasia [Unknown]
  - Joint injury [Recovering/Resolving]
  - Hypotonia [Unknown]
  - Fall [Unknown]

NARRATIVE: CASE EVENT DATE: 20180808
